FAERS Safety Report 8406574-8 (Version None)
Quarter: 2012Q2

REPORT INFORMATION
  Report Type: 
  Country: None (occurrence: None)
  Receive Date: 20120529
  Receipt Date: 20071025
  Transmission Date: 20120825
  Serious: Yes (Life-Threatening, Hospitalization)
  Sender: FDA-Public Use
  Company Number: 02100-JPN-07-0441

PATIENT
  Age: 72 Year
  Sex: Male

DRUGS (9)
  1. PLETAL [Suspect]
     Indication: CEREBRAL INFARCTION
     Dosage: 100 MG, BID, ORAL
     Route: 048
     Dates: start: 20040803, end: 20070806
  2. FAMOTIDINE [Concomitant]
  3. ASPIRIN [Concomitant]
  4. MICARDIS [Concomitant]
  5. GASTER   D (FAMATODINE) [Concomitant]
  6. NORVASC [Concomitant]
  7. TANATRIL (IMIDAPRIL HYDROCHLORIDE) [Concomitant]
  8. NORVASC [Concomitant]
  9. ASPIRIN [Concomitant]

REACTIONS (2)
  - CENTRAL NERVOUS SYSTEM LYMPHOMA [None]
  - ABDOMINAL OPERATION [None]
